FAERS Safety Report 15612341 (Version 1)
Quarter: 2018Q4

REPORT INFORMATION
  Report Type: Spontaneous
  Country: US (occurrence: US)
  Receive Date: 20181107
  Receipt Date: 20181107
  Transmission Date: 20190205
  Serious: No
  Sender: FDA-Public Use
  Company Number: None

PATIENT
  Sex: Female
  Weight: 113.4 kg

DRUGS (1)
  1. GILENYA [Suspect]
     Active Substance: FINGOLIMOD HYDROCHLORIDE
     Indication: MULTIPLE SCLEROSIS
     Dosage: ?          OTHER DOSE:0.5MG;?
     Route: 048
     Dates: start: 20170301, end: 20181016

REACTIONS (7)
  - Headache [None]
  - Bone pain [None]
  - Muscular weakness [None]
  - Back pain [None]
  - Cough [None]
  - Somnolence [None]
  - Syncope [None]
